FAERS Safety Report 5656138-4 (Version None)
Quarter: 2008Q1

REPORT INFORMATION
  Report Type: 
  Country: None (occurrence: None)
  Receive Date: 20080305
  Receipt Date: 20080225
  Transmission Date: 20080703
  Serious: Yes (Death, Other)
  Sender: FDA-Public Use
  Company Number: 080208-0000137

PATIENT
  Age: 19 Day
  Sex: Female

DRUGS (5)
  1. NEOPROFEN [Suspect]
     Indication: PATENT DUCTUS ARTERIOSUS
     Dosage: 10 MG/KG; QD; IV; 5 MG/KG; QD; IV; 5 MG/KG; QD; IV
     Route: 042
     Dates: start: 20080109, end: 20080109
  2. NEOPROFEN [Suspect]
     Indication: PATENT DUCTUS ARTERIOSUS
     Dosage: 10 MG/KG; QD; IV; 5 MG/KG; QD; IV; 5 MG/KG; QD; IV
     Route: 042
     Dates: start: 20080110, end: 20080110
  3. NEOPROFEN [Suspect]
     Indication: PATENT DUCTUS ARTERIOSUS
     Dosage: 10 MG/KG; QD; IV; 5 MG/KG; QD; IV; 5 MG/KG; QD; IV
     Route: 042
     Dates: start: 20080111, end: 20080111
  4. DOPAMINE HCL [Concomitant]
  5. HYDROCORTISONE [Concomitant]

REACTIONS (4)
  - ABDOMINAL ABSCESS [None]
  - GENERALISED OEDEMA [None]
  - ILEAL PERFORATION [None]
  - PERITONITIS [None]
